FAERS Safety Report 7265219-3 (Version None)
Quarter: 2011Q1

REPORT INFORMATION
  Report Type: 
  Country: None (occurrence: None)
  Receive Date: 20110131
  Receipt Date: 20110118
  Transmission Date: 20110831
  Serious: Yes (Hospitalization)
  Sender: FDA-Public Use
  Company Number: IT-BAYER-2011-005687

PATIENT
  Sex: Male

DRUGS (1)
  1. ASPIRIN [Suspect]
     Indication: HEADACHE
     Dosage: 500 MG, QD
     Route: 048
     Dates: start: 20110107, end: 20110107

REACTIONS (2)
  - PRURITUS [None]
  - ERYTHEMA [None]
